FAERS Safety Report 8236660-7 (Version None)
Quarter: 2012Q1

REPORT INFORMATION
  Report Type: 
  Country: None (occurrence: None)
  Receive Date: 20120326
  Receipt Date: 20120326
  Transmission Date: 20120608
  Serious: No
  Sender: FDA-Public Use
  Company Number: None

PATIENT
  Sex: Male
  Weight: 86.1834 kg

DRUGS (1)
  1. CEFDINIR [Suspect]
     Indication: BRONCHITIS
     Dosage: 300 BID PO
     Route: 048
     Dates: start: 20111221, end: 20111228

REACTIONS (1)
  - TIC [None]
